FAERS Safety Report 8370131-2 (Version None)
Quarter: 2012Q2

REPORT INFORMATION
  Report Type: 
  Country: None (occurrence: None)
  Receive Date: 20120518
  Receipt Date: 20120507
  Transmission Date: 20120825
  Serious: Yes (Other)
  Sender: FDA-Public Use
  Company Number: US-JNJFOC-20120507959

PATIENT
  Sex: Female
  Weight: 68.04 kg

DRUGS (3)
  1. ORTHO EVRA [Suspect]
     Indication: HAEMORRHAGE
     Route: 062
     Dates: start: 20120429
  2. ^VITAMINS^ (NOS) [Concomitant]
     Indication: VITAMIN SUPPLEMENTATION
     Route: 048
     Dates: start: 19960101
  3. ORTHO EVRA [Suspect]
     Route: 062
     Dates: start: 20111201, end: 20120401

REACTIONS (6)
  - OFF LABEL USE [None]
  - DRUG DOSE OMISSION [None]
  - AGGRESSION [None]
  - WITHDRAWAL BLEED [None]
  - PRODUCT QUALITY ISSUE [None]
  - HYPERHIDROSIS [None]
